FAERS Safety Report 16015225 (Version 3)
Quarter: 2019Q3

REPORT INFORMATION
  Report Type: Report from Study
  Country: JP (occurrence: JP)
  Receive Date: 20190228
  Receipt Date: 20190712
  Transmission Date: 20191004
  Serious: Yes (Other)
  Sender: FDA-Public Use
  Company Number: JP-ALEXION PHARMACEUTICALS INC.-A201902382

PATIENT

DRUGS (18)
  1. CALCIUM LACTATE [Concomitant]
     Active Substance: CALCIUM LACTATE
     Dosage: 0.2 G, QID
     Route: 048
     Dates: start: 20190301, end: 20190517
  2. PHOSRIBBON [Concomitant]
     Dosage: 22.5 MG, QID
     Route: 048
     Dates: start: 20190118, end: 20190517
  3. FENTANYL. [Concomitant]
     Active Substance: FENTANYL
     Indication: PROPHYLAXIS
     Dosage: 0.2 ML/HR, 24HR
     Route: 041
     Dates: start: 20181113, end: 20181114
  4. PHOSRIBBON [Concomitant]
     Dosage: 20 MG, QID
     Route: 048
     Dates: start: 20181213, end: 20190118
  5. PHOSRIBBON [Concomitant]
     Dosage: 15 MG, QID
     Route: 048
     Dates: start: 20190517
  6. PULMICORT TURBUHALER [Concomitant]
     Active Substance: BUDESONIDE
     Dosage: 0.5 MG, BID
     Dates: start: 20190322, end: 20190404
  7. PULMICORT TURBUHALER [Concomitant]
     Active Substance: BUDESONIDE
     Dosage: 0.25 MG, BID
     Dates: start: 20190405
  8. PREDNISOLONE. [Concomitant]
     Active Substance: PREDNISOLONE
     Indication: PROPHYLAXIS
     Dosage: 1.33 MG, TID
     Route: 048
     Dates: start: 20190304, end: 20190323
  9. CALCIUM LACTATE [Concomitant]
     Active Substance: CALCIUM LACTATE
     Dosage: 0.1 G, QID
     Route: 048
     Dates: start: 20190517, end: 20190527
  10. KAYTWO [Concomitant]
     Active Substance: MENATETRENONE
     Indication: PROPHYLAXIS
     Dosage: 2 MG, SINGLE
     Route: 042
     Dates: start: 20181113, end: 20181113
  11. KAYTWO [Concomitant]
     Active Substance: MENATETRENONE
     Dosage: 1 ML, SINGLE
     Route: 048
     Dates: start: 20181212, end: 20181212
  12. SOLU-CORTEF [Concomitant]
     Active Substance: HYDROCORTISONE SODIUM SUCCINATE
     Indication: PROPHYLAXIS
     Dosage: 12 MG, TID
     Route: 042
     Dates: start: 20190221, end: 20190318
  13. STRENSIQ [Suspect]
     Active Substance: ASFOTASE ALFA
     Indication: HYPOPHOSPHATASIA
     Dosage: 2 MG/KG, TIW
     Route: 058
     Dates: start: 20181113
  14. CALCIUM LACTATE [Concomitant]
     Active Substance: CALCIUM LACTATE
     Dosage: 0.15 G, QID
     Route: 048
     Dates: start: 20181207, end: 20190301
  15. PHOSRIBBON [Concomitant]
     Indication: HYPOPHOSPHATASIA
     Dosage: 12.5 MG, QID
     Route: 048
     Dates: start: 20181210, end: 20181213
  16. KAYTWO [Concomitant]
     Active Substance: MENATETRENONE
     Dosage: 1 ML, SINGLE
     Route: 048
     Dates: start: 20181118, end: 20181118
  17. CALCIUM LACTATE [Concomitant]
     Active Substance: CALCIUM LACTATE
     Indication: PRODUCT USED FOR UNKNOWN INDICATION
     Dosage: 0.2 G, QID
     Route: 048
     Dates: start: 20181204, end: 20181207
  18. PULMICORT TURBUHALER [Concomitant]
     Active Substance: BUDESONIDE
     Indication: PROPHYLAXIS
     Dosage: 0.25 MG, QD
     Dates: start: 20181204, end: 20190221

REACTIONS (4)
  - Pneumonia aspiration [Recovered/Resolved]
  - Injection site erythema [Recovered/Resolved]
  - Pulmonary hypertension [Not Recovered/Not Resolved]
  - Hypercalciuria [Unknown]

NARRATIVE: CASE EVENT DATE: 20181225
